FAERS Safety Report 26025774 (Version 4)
Quarter: 2025Q4

REPORT INFORMATION
  Report Type: Spontaneous
  Country: EU (occurrence: EU)
  Receive Date: 20251111
  Receipt Date: 20251204
  Transmission Date: 20260117
  Serious: Yes (Life-Threatening, Other)
  Sender: CELLTRION
  Company Number: EU-CELLTRION INC.-2025ES040670

PATIENT

DRUGS (4)
  1. RITUXIMAB [Suspect]
     Active Substance: RITUXIMAB
     Indication: Immune tolerance induction
     Dosage: 1000 MG (375 MG/M2); TOTAL ADMINISTERED 150 MG
     Route: 042
  2. RITUXIMAB [Suspect]
     Active Substance: RITUXIMAB
     Dosage: 150 MG
     Route: 042
  3. OBINUTUZUMAB [Suspect]
     Active Substance: OBINUTUZUMAB
     Indication: Immune tolerance induction
     Dosage: 1000 MILLIGRAM
     Route: 065
  4. DARATUMUMAB [Concomitant]
     Active Substance: DARATUMUMAB
     Indication: Immunosuppression
     Dosage: 1800 MILLIGRAM, EVERY 2 WEEKS
     Route: 058

REACTIONS (3)
  - Anaphylactic reaction [Recovering/Resolving]
  - Off label use [Unknown]
  - Off label use [Unknown]
